FAERS Safety Report 6016906-6 (Version None)
Quarter: 2008Q4

REPORT INFORMATION
  Report Type: 
  Country: None (occurrence: None)
  Receive Date: 20081222
  Receipt Date: 20081218
  Transmission Date: 20090506
  Serious: Yes (Hospitalization)
  Sender: FDA-Public Use
  Company Number: TR-GILEAD-2008-0019242

PATIENT
  Age: 55 Year
  Sex: Female

DRUGS (3)
  1. TENOFOVIR DISOPROXIL FUMARATE [Suspect]
     Indication: HEPATITIS B
     Route: 048
     Dates: start: 20081101
  2. HEPSERA [Concomitant]
  3. PEGINTERFERON ALFA-2B [Concomitant]

REACTIONS (5)
  - ASTHENIA [None]
  - DIARRHOEA [None]
  - HEADACHE [None]
  - NAUSEA [None]
  - PALPITATIONS [None]
